FAERS Safety Report 19518571 (Version 1)
Quarter: 2021Q3

REPORT INFORMATION
  Report Type: Spontaneous
  Country: US (occurrence: US)
  Receive Date: 20210712
  Receipt Date: 20210712
  Transmission Date: 20211014
  Serious: No
  Sender: FDA-Public Use
  Company Number: US-ALLERGAN-2114646US

PATIENT
  Age: 46 Year
  Sex: Female
  Weight: 79.38 kg

DRUGS (1)
  1. UBRELVY [Suspect]
     Active Substance: UBROGEPANT
     Indication: MIGRAINE
     Dosage: 0.5 DF ONCE
     Route: 048
     Dates: start: 20201214, end: 20201214

REACTIONS (2)
  - Urticaria [Recovered/Resolved]
  - Wrong technique in product usage process [Unknown]

NARRATIVE: CASE EVENT DATE: 20201214
